FAERS Safety Report 9702243 (Version 1)
Quarter: 2013Q4

REPORT INFORMATION
  Report Type: Spontaneous
  Country: US (occurrence: US)
  Receive Date: 20131121
  Receipt Date: 20131121
  Transmission Date: 20140711
  Serious: Yes (Hospitalization)
  Sender: FDA-Public Use
  Company Number: US-BAYER-2013-141340

PATIENT
  Age: 25 Year
  Sex: Female
  Weight: 85.71 kg

DRUGS (10)
  1. YASMIN [Suspect]
  2. PENICILLIN VK [Concomitant]
     Dosage: 500 MG
     Route: 048
  3. MOTRIN [Concomitant]
  4. LANSOPRAZOLE [Concomitant]
  5. ACETAMINOPHEN [Concomitant]
  6. ROBAXIN [Concomitant]
  7. ADVAIR [Concomitant]
  8. ALBUTEROL [Concomitant]
  9. PREVACID [Concomitant]
  10. ULTRAM [Concomitant]

REACTIONS (1)
  - Pulmonary embolism [None]
